FAERS Safety Report 22192072 (Version 4)
Quarter: 2023Q2

REPORT INFORMATION
  Report Type: Report from Study
  Country: DE (occurrence: None)
  Receive Date: 20230410
  Receipt Date: 20230515
  Transmission Date: 20230722
  Serious: Yes (Hospitalization)
  Sender: FDA-Public Use
  Company Number: DE-Eisai Medical Research-EC-2023-137795

PATIENT
  Age: 69 Year
  Sex: Male
  Weight: 95 kg

DRUGS (4)
  1. LENVATINIB [Suspect]
     Active Substance: LENVATINIB
     Indication: Hepatocellular carcinoma
     Dosage: DOSE, ROUTE, AND FREQUENCY: UNKNOWN
     Dates: start: 20230310, end: 20230330
  2. LENVATINIB [Suspect]
     Active Substance: LENVATINIB
     Dosage: DOSE, ROUTE, AND FREQUENCY: UNKNOWN
     Dates: start: 202304, end: 20230505
  3. PEMBROLIZUMAB [Suspect]
     Active Substance: PEMBROLIZUMAB
     Indication: Hepatocellular carcinoma
     Dosage: DOSE, ROUTE, AND FREQUENCY: UNKNOWN.
     Dates: start: 20230310, end: 20230310
  4. PEMBROLIZUMAB [Suspect]
     Active Substance: PEMBROLIZUMAB
     Dosage: DOSE, ROUTE, AND FREQUENCY: UNKNOWN.
     Dates: start: 202304, end: 20230421

REACTIONS (2)
  - Cholangitis [Recovered/Resolved]
  - Embolism [Recovered/Resolved]

NARRATIVE: CASE EVENT DATE: 20230331
